FAERS Safety Report 5045317-5 (Version None)
Quarter: 2006Q3

REPORT INFORMATION
  Report Type: 
  Country: None (occurrence: None)
  Receive Date: 20060707
  Receipt Date: 20060503
  Transmission Date: 20061208
  Serious: Yes (Hospitalization, Disabling, Other)
  Sender: FDA-Public Use
  Company Number: 2006UW08827

PATIENT
  Age: 29840 Day
  Sex: Female
  Weight: 85.5 kg

DRUGS (6)
  1. ARIMIDEX [Suspect]
     Indication: BREAST CANCER FEMALE
     Route: 048
     Dates: start: 19980320, end: 20030318
  2. CLONAZEPAM [Concomitant]
     Indication: SLEEP DISORDER
     Route: 048
  3. ADALAT [Concomitant]
     Indication: ANGINA UNSTABLE
     Route: 048
  4. HYDROCHLOROTHIAZIDE [Concomitant]
     Indication: HYPERTENSION
     Route: 048
  5. ATENOLOL [Concomitant]
     Indication: HYPERTENSION
     Route: 048
  6. MULTI-VITAMIN [Concomitant]
     Route: 048
     Dates: start: 20010501

REACTIONS (6)
  - ANKLE FRACTURE [None]
  - BLOOD PRESSURE SYSTOLIC INCREASED [None]
  - JOINT SWELLING [None]
  - PALLOR [None]
  - PNEUMONIA [None]
  - RESPIRATORY RATE INCREASED [None]
